FAERS Safety Report 20160077 (Version 2)
Quarter: 2021Q4

REPORT INFORMATION
  Report Type: Spontaneous
  Country: US (occurrence: US)
  Receive Date: 20211208
  Receipt Date: 20211222
  Transmission Date: 20220303
  Serious: Yes (Other)
  Sender: FDA-Public Use
  Company Number: US-BAYER-2021A263110

PATIENT
  Age: 34 Year
  Sex: Female

DRUGS (1)
  1. KYLEENA [Suspect]
     Active Substance: LEVONORGESTREL
     Dosage: 17.5?G/DAY
     Route: 015
     Dates: start: 20191213

REACTIONS (3)
  - Ectopic pregnancy with contraceptive device [Recovered/Resolved with Sequelae]
  - Ruptured ectopic pregnancy [Recovered/Resolved with Sequelae]
  - Drug ineffective [None]

NARRATIVE: CASE EVENT DATE: 20211123
